FAERS Safety Report 20430304 (Version 1)
Quarter: 2022Q1

REPORT INFORMATION
  Report Type: Report from Study
  Country: NL (occurrence: NL)
  Receive Date: 20220204
  Receipt Date: 20220204
  Transmission Date: 20220423
  Serious: Yes (Death, Hospitalization)
  Sender: FDA-Public Use
  Company Number: NL-SERVIER-S20005727

PATIENT

DRUGS (12)
  1. ONCASPAR [Suspect]
     Active Substance: PEGASPARGASE
     Indication: Acute lymphocytic leukaemia
     Dosage: 1870 IU, QD
     Route: 065
     Dates: start: 20200514, end: 20200514
  2. ADRIAMYCIN [Suspect]
     Active Substance: DOXORUBICIN HYDROCHLORIDE
     Indication: Acute lymphocytic leukaemia
     Dosage: 46.8 MG, QD
     Route: 065
     Dates: start: 20200511, end: 20200525
  3. DEXAMETHASONE [Suspect]
     Active Substance: DEXAMETHASONE
     Indication: Acute lymphocytic leukaemia
     Dosage: 10 MG, QD
     Route: 048
     Dates: start: 20200511, end: 20200524
  4. PREDNISOLONE [Suspect]
     Active Substance: PREDNISOLONE
     Indication: Acute lymphocytic leukaemia
     Dosage: 25 MG, QD
     Route: 037
     Dates: start: 20200511, end: 20200524
  5. PREDNISOLONE [Suspect]
     Active Substance: PREDNISOLONE
     Dosage: 25 UNK
     Route: 065
     Dates: start: 20200706, end: 20200706
  6. METHOTREXATE [Suspect]
     Active Substance: METHOTREXATE
     Indication: Acute lymphocytic leukaemia
     Dosage: 12.5 MG, QD
     Route: 037
     Dates: start: 20200511, end: 20200511
  7. METHOTREXATE [Suspect]
     Active Substance: METHOTREXATE
     Dosage: 12.5 UNK
     Route: 065
     Dates: start: 20200706, end: 20200706
  8. CYTARABINE [Suspect]
     Active Substance: CYTARABINE
     Indication: Acute lymphocytic leukaemia
     Dosage: 112 MG
     Route: 065
     Dates: start: 20200706, end: 20200721
  9. ETOPOSIDE [Suspect]
     Active Substance: ETOPOSIDE
     Indication: Acute lymphocytic leukaemia
     Dosage: 224 MG
     Route: 065
     Dates: start: 20200706, end: 20200720
  10. THIOGUANINE [Suspect]
     Active Substance: THIOGUANINE
     Indication: Acute lymphocytic leukaemia
     Dosage: 120 MG
     Route: 065
     Dates: start: 20200706, end: 20200726
  11. VINBLASTINE [Suspect]
     Active Substance: VINBLASTINE
     Indication: Acute lymphocytic leukaemia
     Dosage: 10 MG
     Route: 065
     Dates: start: 20200511, end: 20200525
  12. BLINATUMOMAB [Concomitant]
     Active Substance: BLINATUMOMAB
     Indication: Acute lymphocytic leukaemia
     Dosage: 28 ?G, QD
     Route: 065
     Dates: start: 20200320, end: 20200416

REACTIONS (2)
  - Neutropenia [Recovered/Resolved]
  - Neutropenic sepsis [Fatal]

NARRATIVE: CASE EVENT DATE: 20200511
